FAERS Safety Report 8608050 (Version 2)
Quarter: 2014Q1

REPORT INFORMATION
  Report Type: Spontaneous
  Country: US (occurrence: US)
  Receive Date: 20120611
  Receipt Date: 20140115
  Transmission Date: 20141002
  Serious: No
  Sender: FDA-Public Use
  Company Number: US-ASTRAZENECA-2012SE35480

PATIENT
  Age: 627 Month
  Sex: Female
  Weight: 86.2 kg

DRUGS (14)
  1. NEXIUM [Suspect]
     Indication: GASTROOESOPHAGEAL REFLUX DISEASE
     Dosage: ONE DAILY
     Route: 048
     Dates: start: 2002, end: 2006
  2. PREVACID [Concomitant]
  3. TUMS [Concomitant]
     Dosage: OCASSIONALLY
  4. ROLAIDS [Concomitant]
     Dosage: OCASSIONALLY
  5. LOSARTAN [Concomitant]
     Indication: BLOOD PRESSURE ABNORMAL
  6. DILTIAZEM [Concomitant]
     Indication: BLOOD PRESSURE ABNORMAL
  7. ASPIRIN [Concomitant]
  8. OMEGA3 [Concomitant]
  9. VITAMIN D [Concomitant]
  10. VITAMIN C [Concomitant]
  11. FERROUS SULFATE [Concomitant]
  12. IRON [Concomitant]
  13. ALENDRONATE [Concomitant]
     Indication: BONE DISORDER
  14. PREMARIN [Concomitant]
     Dates: start: 1990, end: 1996

REACTIONS (9)
  - Osteoporosis [Unknown]
  - Multiple fractures [Unknown]
  - Foot fracture [Unknown]
  - Local swelling [Unknown]
  - Fall [Unknown]
  - Cataract [Unknown]
  - Arthritis [Unknown]
  - Diabetes mellitus [Unknown]
  - Vitamin D deficiency [Unknown]
